FAERS Safety Report 4801054-0 (Version None)
Quarter: 2005Q4

REPORT INFORMATION
  Report Type: 
  Country: None (occurrence: None)
  Receive Date: 20051017
  Receipt Date: 20050601
  Transmission Date: 20060501
  Serious: Yes (Other)
  Sender: FDA-Public Use
  Company Number: PHEH2005US06166

PATIENT
  Age: 84 Year
  Sex: Male

DRUGS (5)
  1. ZOMETA [Suspect]
     Indication: PROSTATE CANCER METASTATIC
     Dosage: 4 MG, QMO
     Route: 042
     Dates: start: 20041001, end: 20050501
  2. INSULIN [Concomitant]
  3. TOPROL-XL [Concomitant]
  4. CAPTOPRIL [Concomitant]
  5. ASPIRIN [Suspect]

REACTIONS (3)
  - BLOOD CREATININE INCREASED [None]
  - BLOOD UREA INCREASED [None]
  - HYDRONEPHROSIS [None]
